FAERS Safety Report 15809258 (Version 6)
Quarter: 2019Q1

REPORT INFORMATION
  Report Type: Spontaneous
  Country: CH (occurrence: CH)
  Receive Date: 20190110
  Receipt Date: 20190311
  Transmission Date: 20190417
  Serious: Yes (Other)
  Sender: FDA-Public Use
  Company Number: CH-BEH-2019098217

PATIENT
  Sex: Male
  Weight: 90 kg

DRUGS (4)
  1. HIZENTRA [Suspect]
     Active Substance: HUMAN IMMUNOGLOBULIN G
     Indication: PARAPARESIS
     Dosage: 8 G, QW
     Route: 058
     Dates: start: 201809
  2. HIZENTRA [Suspect]
     Active Substance: HUMAN IMMUNOGLOBULIN G
     Indication: GUILLAIN-BARRE SYNDROME
     Dosage: 4 G, QW
     Route: 058
     Dates: start: 201805, end: 201809
  3. XARELTO [Concomitant]
     Active Substance: RIVAROXABAN
  4. HIZENTRA [Suspect]
     Active Substance: HUMAN IMMUNOGLOBULIN G
     Indication: MULTIFOCAL MOTOR NEUROPATHY
     Dosage: 8 G, QW
     Route: 058
     Dates: start: 201503, end: 201805

REACTIONS (6)
  - Impaired work ability [Unknown]
  - Drug ineffective for unapproved indication [Unknown]
  - Gait disturbance [Unknown]
  - Guillain-Barre syndrome [Unknown]
  - Multifocal motor neuropathy [Unknown]
  - Paraparesis [Unknown]
